FAERS Safety Report 19725611 (Version 1)
Quarter: 2021Q3

REPORT INFORMATION
  Report Type: Report from Study
  Country: US (occurrence: US)
  Receive Date: 20210820
  Receipt Date: 20210820
  Transmission Date: 20211014
  Serious: Yes (Hospitalization, Other)
  Sender: FDA-Public Use
  Company Number: US-BIOVITRUM-2021US1091

PATIENT
  Age: 5 Year
  Sex: Female

DRUGS (7)
  1. ASPIRIN. [Concomitant]
     Active Substance: ASPIRIN
  2. KINERET [Suspect]
     Active Substance: ANAKINRA
     Indication: AUTOIMMUNE DISORDER
     Route: 058
     Dates: start: 20201214
  3. KINERET [Suspect]
     Active Substance: ANAKINRA
     Route: 058
     Dates: start: 20190711
  4. KINERET [Suspect]
     Active Substance: ANAKINRA
     Route: 058
     Dates: start: 20210121
  5. BENADRYL [Concomitant]
     Active Substance: DIPHENHYDRAMINE HYDROCHLORIDE
  6. KINERET [Suspect]
     Active Substance: ANAKINRA
     Route: 058
     Dates: start: 202101
  7. MELATONIN [Concomitant]
     Active Substance: MELATONIN

REACTIONS (7)
  - Injection site reaction [Unknown]
  - Injection site pain [Unknown]
  - Injection site bruising [Unknown]
  - Off label use [Unknown]
  - Injection site rash [Recovering/Resolving]
  - Pyrexia [Unknown]
  - Staphylococcal infection [Recovering/Resolving]

NARRATIVE: CASE EVENT DATE: 20210121
